FAERS Safety Report 18733664 (Version 4)
Quarter: 2021Q2

REPORT INFORMATION
  Report Type: Other
  Country: CA (occurrence: CA)
  Receive Date: 20210113
  Receipt Date: 20210630
  Transmission Date: 20210717
  Serious: Yes (Other)
  Sender: FDA-Public Use
  Company Number: CA-ROCHE-2745871

PATIENT
  Age: 56 Year
  Sex: Male

DRUGS (19)
  1. RITUXAN [Suspect]
     Active Substance: RITUXIMAB
     Indication: GRANULOMATOSIS WITH POLYANGIITIS
     Route: 041
     Dates: start: 20180420, end: 20180511
  2. METHYLPREDNISOLONE. [Concomitant]
     Active Substance: METHYLPREDNISOLONE
     Indication: PREMEDICATION
     Route: 042
     Dates: start: 20180420
  3. PREDNISONE. [Concomitant]
     Active Substance: PREDNISONE
  4. DIPHENHYDRAMINE HCL [Concomitant]
     Active Substance: DIPHENHYDRAMINE HYDROCHLORIDE
     Indication: PREMEDICATION
     Route: 048
     Dates: start: 20180420
  5. NAPROXEN. [Concomitant]
     Active Substance: NAPROXEN
  6. RITUXAN [Suspect]
     Active Substance: RITUXIMAB
     Route: 041
     Dates: start: 20190502, end: 20200810
  7. PANTOPRAZOLE [Concomitant]
     Active Substance: PANTOPRAZOLE
  8. SUBOXONE [Concomitant]
     Active Substance: BUPRENORPHINE HYDROCHLORIDE\NALOXONE HYDROCHLORIDE
  9. RITUXAN [Suspect]
     Active Substance: RITUXIMAB
     Route: 042
     Dates: start: 20210211
  10. ACETAMINOPHEN. [Concomitant]
     Active Substance: ACETAMINOPHEN
     Indication: PREMEDICATION
     Route: 048
     Dates: start: 20180420
  11. CALCIUM [Concomitant]
     Active Substance: CALCIUM
  12. MEDROL [Concomitant]
     Active Substance: METHYLPREDNISOLONE
  13. SOLU?MEDROL [Concomitant]
     Active Substance: METHYLPREDNISOLONE SODIUM SUCCINATE
  14. RITUXAN [Suspect]
     Active Substance: RITUXIMAB
     Dosage: FIRST RPAP INFUSION. DAY 1 AND 15
     Route: 041
     Dates: start: 20181015, end: 20181107
  15. NORVASC [Concomitant]
     Active Substance: AMLODIPINE BESYLATE
  16. PREVACID [Concomitant]
     Active Substance: LANSOPRAZOLE
  17. RISEDRONATE [Concomitant]
     Active Substance: RISEDRONATE SODIUM
  18. MORPHINE [Concomitant]
     Active Substance: MORPHINE
  19. SULFATRIM [Concomitant]
     Active Substance: SULFAMETHOXAZOLE\TRIMETHOPRIM

REACTIONS (5)
  - Respiratory disorder [Unknown]
  - Vomiting [Unknown]
  - Pneumonia [Recovered/Resolved]
  - Nausea [Unknown]
  - Pneumonia [Unknown]

NARRATIVE: CASE EVENT DATE: 2020
